FAERS Safety Report 7583504 (Version 4)
Quarter: 2015Q3

REPORT INFORMATION
  Report Type: Spontaneous
  Country: IT (occurrence: IT)
  Receive Date: 20100914
  Receipt Date: 20150721
  Transmission Date: 20151125
  Serious: Yes (Death)
  Sender: FDA-Public Use
  Company Number: IT-BRACCO-000882

PATIENT
  Age: 54 Year
  Sex: Female

DRUGS (3)
  1. MULTIHANCE [Suspect]
     Active Substance: GADOBENATE DIMEGLUMINE
     Indication: METASTASES TO PERITONEUM
     Dosage: 0.2 ML/KG
     Route: 042
     Dates: start: 20100910, end: 20100910
  2. MULTIHANCE [Suspect]
     Active Substance: GADOBENATE DIMEGLUMINE
     Indication: OVARIAN CANCER
     Dosage: 0.2 ML/KG
     Route: 042
     Dates: start: 20100910, end: 20100910
  3. MULTIHANCE [Suspect]
     Active Substance: GADOBENATE DIMEGLUMINE
     Indication: NUCLEAR MAGNETIC RESONANCE IMAGING ABDOMINAL
     Dosage: 0.2 ML/KG
     Route: 042
     Dates: start: 20100910, end: 20100910

REACTIONS (2)
  - Dyspnoea [Fatal]
  - Abdominal pain [Fatal]

NARRATIVE: CASE EVENT DATE: 20100910
